FAERS Safety Report 25406126 (Version 1)
Quarter: 2025Q2

REPORT INFORMATION
  Report Type: Spontaneous
  Country: CA (occurrence: CA)
  Receive Date: 20250606
  Receipt Date: 20250606
  Transmission Date: 20250716
  Serious: Yes (Death)
  Sender: MYLAN
  Company Number: CA-MYLANLABS-2025M1047661

PATIENT
  Age: 30 Year
  Sex: Male

DRUGS (36)
  1. GABAPENTIN [Suspect]
     Active Substance: GABAPENTIN
     Indication: Product used for unknown indication
  2. GABAPENTIN [Suspect]
     Active Substance: GABAPENTIN
     Route: 065
  3. GABAPENTIN [Suspect]
     Active Substance: GABAPENTIN
     Route: 065
  4. GABAPENTIN [Suspect]
     Active Substance: GABAPENTIN
  5. VENLAFAXINE [Suspect]
     Active Substance: VENLAFAXINE HYDROCHLORIDE
     Indication: Product used for unknown indication
  6. VENLAFAXINE [Suspect]
     Active Substance: VENLAFAXINE HYDROCHLORIDE
     Route: 065
  7. VENLAFAXINE [Suspect]
     Active Substance: VENLAFAXINE HYDROCHLORIDE
     Route: 065
  8. VENLAFAXINE [Suspect]
     Active Substance: VENLAFAXINE HYDROCHLORIDE
  9. AMPHETAMINE [Suspect]
     Active Substance: AMPHETAMINE
     Indication: Product used for unknown indication
  10. AMPHETAMINE [Suspect]
     Active Substance: AMPHETAMINE
     Route: 065
  11. AMPHETAMINE [Suspect]
     Active Substance: AMPHETAMINE
     Route: 065
  12. AMPHETAMINE [Suspect]
     Active Substance: AMPHETAMINE
  13. CAFFEINE [Suspect]
     Active Substance: CAFFEINE
     Indication: Product used for unknown indication
  14. CAFFEINE [Suspect]
     Active Substance: CAFFEINE
     Route: 065
  15. CAFFEINE [Suspect]
     Active Substance: CAFFEINE
     Route: 065
  16. CAFFEINE [Suspect]
     Active Substance: CAFFEINE
  17. FENTANYL [Suspect]
     Active Substance: FENTANYL
     Indication: Product used for unknown indication
  18. FENTANYL [Suspect]
     Active Substance: FENTANYL
     Route: 065
  19. FENTANYL [Suspect]
     Active Substance: FENTANYL
     Route: 065
  20. FENTANYL [Suspect]
     Active Substance: FENTANYL
  21. METHAMPHETAMINE [Suspect]
     Active Substance: METHAMPHETAMINE
     Indication: Product used for unknown indication
  22. METHAMPHETAMINE [Suspect]
     Active Substance: METHAMPHETAMINE
     Route: 065
  23. METHAMPHETAMINE [Suspect]
     Active Substance: METHAMPHETAMINE
     Route: 065
  24. METHAMPHETAMINE [Suspect]
     Active Substance: METHAMPHETAMINE
  25. NICOTINE [Suspect]
     Active Substance: NICOTINE
     Indication: Product used for unknown indication
  26. NICOTINE [Suspect]
     Active Substance: NICOTINE
     Route: 065
  27. NICOTINE [Suspect]
     Active Substance: NICOTINE
     Route: 065
  28. NICOTINE [Suspect]
     Active Substance: NICOTINE
  29. OLANZAPINE [Suspect]
     Active Substance: OLANZAPINE
     Indication: Product used for unknown indication
  30. OLANZAPINE [Suspect]
     Active Substance: OLANZAPINE
     Route: 065
  31. OLANZAPINE [Suspect]
     Active Substance: OLANZAPINE
     Route: 065
  32. OLANZAPINE [Suspect]
     Active Substance: OLANZAPINE
  33. HERBALS\TETRAHYDROCANNABINOL UNSPECIFIED [Suspect]
     Active Substance: HERBALS\TETRAHYDROCANNABINOL UNSPECIFIED
     Indication: Product used for unknown indication
  34. HERBALS\TETRAHYDROCANNABINOL UNSPECIFIED [Suspect]
     Active Substance: HERBALS\TETRAHYDROCANNABINOL UNSPECIFIED
     Route: 065
  35. HERBALS\TETRAHYDROCANNABINOL UNSPECIFIED [Suspect]
     Active Substance: HERBALS\TETRAHYDROCANNABINOL UNSPECIFIED
     Route: 065
  36. HERBALS\TETRAHYDROCANNABINOL UNSPECIFIED [Suspect]
     Active Substance: HERBALS\TETRAHYDROCANNABINOL UNSPECIFIED

REACTIONS (2)
  - Toxicity to various agents [Fatal]
  - Overdose [Fatal]
